FAERS Safety Report 18757243 (Version 1)
Quarter: 2021Q1

REPORT INFORMATION
  Report Type: Report from Study
  Country: BR (occurrence: BR)
  Receive Date: 20210119
  Receipt Date: 20210119
  Transmission Date: 20210419
  Serious: Yes (Other)
  Sender: FDA-Public Use
  Company Number: NVSC2021BR009462

PATIENT
  Sex: Female

DRUGS (1)
  1. EXELON [Suspect]
     Active Substance: RIVASTIGMINE TARTRATE
     Indication: PRODUCT USED FOR UNKNOWN INDICATION
     Dosage: UNK (4.6)
     Route: 065
     Dates: start: 2017, end: 2017

REACTIONS (5)
  - Application site irritation [Recovered/Resolved]
  - Dementia [Unknown]
  - Application site erythema [Recovered/Resolved]
  - Application site hypersensitivity [Recovered/Resolved]
  - Drug ineffective [Unknown]
